FAERS Safety Report 7678619-4 (Version None)
Quarter: 2011Q3

REPORT INFORMATION
  Report Type: 
  Country: None (occurrence: None)
  Receive Date: 20110811
  Receipt Date: 20110805
  Transmission Date: 20111222
  Serious: Yes (Hospitalization, Other)
  Sender: FDA-Public Use
  Company Number: US-SANOFI-AVENTIS-2011SA046946

PATIENT
  Age: 47 Year
  Sex: Male
  Weight: 92 kg

DRUGS (5)
  1. ALL OTHER THERAPEUTIC PRODUCTS [Concomitant]
  2. LANTUS [Suspect]
     Dosage: DOSE:9 UNIT(S)
     Route: 058
     Dates: start: 20110425
  3. LANTUS [Suspect]
     Dosage: DOSE:5 UNIT(S)
     Route: 058
  4. LANTUS [Suspect]
     Dosage: DOSE:7 UNIT(S)
     Route: 058
  5. SOLOSTAR [Suspect]
     Dates: start: 20110401

REACTIONS (6)
  - HYPERHIDROSIS [None]
  - CARDIAC OPERATION [None]
  - INJECTION SITE PAIN [None]
  - FEELING ABNORMAL [None]
  - BLOOD GLUCOSE INCREASED [None]
  - DIZZINESS [None]
